FAERS Safety Report 5920965-6 (Version None)
Quarter: 2008Q4

REPORT INFORMATION
  Report Type: 
  Country: None (occurrence: None)
  Receive Date: 20081014
  Receipt Date: 20080929
  Transmission Date: 20090506
  Serious: Yes (Other)
  Sender: FDA-Public Use
  Company Number: S08-FRA-00740-01

PATIENT
  Age: 26 Year
  Sex: Male
  Weight: 80 kg

DRUGS (7)
  1. ESCITALOPRAM OXALATE [Suspect]
     Indication: DEPRESSION
     Dosage: 10 MG (10 MG, 1 IN 1 D), ORAL; 5 MG (5 MG, 1 IN 1 D), ORAL
     Route: 048
     Dates: start: 20070505, end: 20071201
  2. ESCITALOPRAM OXALATE [Suspect]
     Indication: MOOD SWINGS
     Dosage: 10 MG (10 MG, 1 IN 1 D), ORAL; 5 MG (5 MG, 1 IN 1 D), ORAL
     Route: 048
     Dates: start: 20070505, end: 20071201
  3. ESCITALOPRAM OXALATE [Suspect]
     Indication: DEPRESSION
     Dosage: 10 MG (10 MG, 1 IN 1 D), ORAL; 5 MG (5 MG, 1 IN 1 D), ORAL
     Route: 048
     Dates: start: 20071201
  4. ESCITALOPRAM OXALATE [Suspect]
     Indication: MOOD SWINGS
     Dosage: 10 MG (10 MG, 1 IN 1 D), ORAL; 5 MG (5 MG, 1 IN 1 D), ORAL
     Route: 048
     Dates: start: 20071201
  5. ESCITALOPRAM [Suspect]
     Indication: DEPRESSION
     Dosage: 2.5 MG (5 MG, 1 IN 2 D), ORAL
     Route: 048
  6. ESCITALOPRAM [Suspect]
     Indication: MOOD SWINGS
     Dosage: 2.5 MG (5 MG, 1 IN 2 D), ORAL
     Route: 048
  7. CLONAZEPAM [Suspect]
     Dosage: 2 MG (2 MG, 1 IN 1 D), ORAL
     Route: 048
     Dates: start: 20070505

REACTIONS (2)
  - GRAND MAL CONVULSION [None]
  - NO THERAPEUTIC RESPONSE [None]
